FAERS Safety Report 18358578 (Version 2)
Quarter: 2020Q4

REPORT INFORMATION
  Report Type: Spontaneous
  Country: SE (occurrence: SE)
  Receive Date: 20201008
  Receipt Date: 20201022
  Transmission Date: 20210114
  Serious: Yes (Life-Threatening, Hospitalization)
  Sender: FDA-Public Use
  Company Number: SE-TEVA-2020-SE-1835266

PATIENT
  Age: 68 Year
  Sex: Male

DRUGS (6)
  1. AMLODIPINE [Suspect]
     Active Substance: AMLODIPINE BESYLATE
     Indication: SUICIDE ATTEMPT
     Route: 048
  2. ALBUMIN [Suspect]
     Active Substance: ALBUMIN HUMAN
     Indication: MEAN ARTERIAL PRESSURE DECREASED
     Route: 065
  3. VASOPRESSIN. [Concomitant]
     Active Substance: VASOPRESSIN
     Indication: MEAN ARTERIAL PRESSURE DECREASED
     Dosage: 0.03 U/MIN
     Route: 065
  4. METHYLENE BLUE. [Suspect]
     Active Substance: METHYLENE BLUE
     Indication: MEAN ARTERIAL PRESSURE DECREASED
     Dosage: AS SINGLE BOLUS
     Route: 050
  5. NORADRENALINE [Concomitant]
     Active Substance: NOREPINEPHRINE
     Indication: MEAN ARTERIAL PRESSURE DECREASED
     Dosage: 0.1 MICROG/KG/MIN
     Route: 065
  6. NORADRENALINE [Concomitant]
     Active Substance: NOREPINEPHRINE
     Dosage: 0.5 MICROG/KG/MIN
     Route: 065

REACTIONS (8)
  - Hyperdynamic left ventricle [Recovered/Resolved]
  - Drug ineffective [Unknown]
  - Mean arterial pressure decreased [Recovered/Resolved]
  - Urine output decreased [Recovered/Resolved]
  - Toxicity to various agents [Recovered/Resolved]
  - Intentional overdose [Recovered/Resolved]
  - Non-cardiogenic pulmonary oedema [Recovered/Resolved]
  - Suicide attempt [Recovered/Resolved]
